FAERS Safety Report 13304773 (Version 1)
Quarter: 2017Q1

REPORT INFORMATION
  Report Type: Spontaneous
  Country: IN (occurrence: IN)
  Receive Date: 20170308
  Receipt Date: 20170308
  Transmission Date: 20170428
  Serious: Yes (Other)
  Sender: FDA-Public Use
  Company Number: IN-TORRENT-00000958

PATIENT
  Age: 4 Year
  Sex: Female

DRUGS (5)
  1. LEVETIRACETAM. [Suspect]
     Active Substance: LEVETIRACETAM
  2. PHENYTOIN. [Suspect]
     Active Substance: PHENYTOIN
  3. LAMOTRIGINE. [Suspect]
     Active Substance: LAMOTRIGINE
  4. CLOBAZAM [Suspect]
     Active Substance: CLOBAZAM
  5. VALPROATE SODIUM. [Suspect]
     Active Substance: VALPROATE SODIUM

REACTIONS (3)
  - Posture abnormal [Not Recovered/Not Resolved]
  - Off label use [Unknown]
  - Drug ineffective [Unknown]
